FAERS Safety Report 23815175 (Version 3)
Quarter: 2024Q2

REPORT INFORMATION
  Report Type: Report from Study
  Country: US (occurrence: US)
  Receive Date: 20240503
  Receipt Date: 20240618
  Transmission Date: 20240716
  Serious: Yes (Death, Life-Threatening, Hospitalization, Other)
  Sender: FDA-Public Use
  Company Number: US-JAZZ PHARMACEUTICALS-2024-US-006857

PATIENT
  Age: 47 Year
  Sex: Female

DRUGS (1)
  1. VYXEOS [Suspect]
     Active Substance: CYTARABINE\DAUNORUBICIN
     Indication: Acute myeloid leukaemia
     Dosage: UNK

REACTIONS (14)
  - Death [Fatal]
  - Respiratory failure [Recovered/Resolved]
  - Rhabdomyolysis [Recovered/Resolved with Sequelae]
  - Febrile neutropenia [Recovered/Resolved]
  - Febrile neutropenia [Recovered/Resolved]
  - Scleral oedema [Recovered/Resolved]
  - Retinal haemorrhage [Recovered/Resolved]
  - Electrocardiogram QT prolonged [Recovered/Resolved]
  - Arrhythmia [Recovered/Resolved]
  - Electrocardiogram QT prolonged [Recovered/Resolved]
  - Electrocardiogram ST segment depression [Recovered/Resolved]
  - Diarrhoea [Recovered/Resolved]
  - Electrocardiogram T wave abnormal [Recovered/Resolved]
  - Electrocardiogram T wave abnormal [Recovered/Resolved]

NARRATIVE: CASE EVENT DATE: 20200715
